FAERS Safety Report 7424646-1 (Version None)
Quarter: 2011Q2

REPORT INFORMATION
  Report Type: 
  Country: None (occurrence: None)
  Receive Date: 20110419
  Receipt Date: 20110412
  Transmission Date: 20111010
  Serious: Yes (Hospitalization, Other)
  Sender: FDA-Public Use
  Company Number: DE-PFIZER INC-2011027881

PATIENT
  Age: 3 Day
  Sex: Male
  Weight: 3.315 kg

DRUGS (1)
  1. ZELDOX [Suspect]
     Indication: BIPOLAR I DISORDER
     Dosage: 40 MG, EVERY MORNING
     Route: 064

REACTIONS (6)
  - DRUG EXPOSURE DURING PREGNANCY [None]
  - UNDERWEIGHT [None]
  - HYPOGLYCAEMIA [None]
  - WEIGHT DECREASED [None]
  - DRUG EXPOSURE VIA BREAST MILK [None]
  - HYPOTHERMIA [None]
